FAERS Safety Report 8011182 (Version 2)
Quarter: 2014Q3

REPORT INFORMATION
  Report Type: Spontaneous
  Country: US (occurrence: US)
  Receive Date: 20110627
  Receipt Date: 20140716
  Transmission Date: 20150326
  Serious: Yes (Other)
  Sender: FDA-Public Use
  Company Number: US-PFIZER INC-2011140027

PATIENT
  Age: 64 Year
  Sex: Male

DRUGS (1)
  1. BEXTRA [Suspect]
     Active Substance: VALDECOXIB
     Indication: PAIN IN EXTREMITY
     Dosage: 20 MG, 1X/DAY
     Route: 048
     Dates: start: 20040430, end: 20050422

REACTIONS (14)
  - Cerebrovascular accident [Unknown]
  - Amnesia [Unknown]
  - Pain of skin [Unknown]
  - Abdominal discomfort [Unknown]
  - Skin ulcer [Unknown]
  - Mental impairment [Unknown]
  - Headache [Unknown]
  - Scar [Unknown]
  - Basal cell carcinoma [Unknown]
  - Sinusitis [Unknown]
  - Skin lesion [Unknown]
  - Activities of daily living impaired [Unknown]
  - Cerebral ischaemia [Unknown]
  - Visual impairment [Unknown]

NARRATIVE: CASE EVENT DATE: 200503
